FAERS Safety Report 25850479 (Version 2)
Quarter: 2025Q4

REPORT INFORMATION
  Report Type: Spontaneous
  Country: US (occurrence: US)
  Receive Date: 20250926
  Receipt Date: 20251010
  Transmission Date: 20260117
  Serious: No
  Sender: TOLMAR
  Company Number: US-Tolmar-TLM-2025-07046

PATIENT
  Sex: Female

DRUGS (4)
  1. ELIGARD [Suspect]
     Active Substance: LEUPROLIDE ACETATE
     Indication: Non-Hodgkin^s lymphoma
     Dosage: EXP DATE: MAR-2026; FEB-2026; 28-FEB-2026
  2. ELIGARD [Suspect]
     Active Substance: LEUPROLIDE ACETATE
     Indication: Breast cancer
  3. DEVICE [Suspect]
     Active Substance: DEVICE
     Indication: Non-Hodgkin^s lymphoma
     Dosage: MAR-2026; FEB-2026; 28-FEB-2026
  4. DEVICE [Suspect]
     Active Substance: DEVICE
     Indication: Breast cancer

REACTIONS (3)
  - Intercepted product administration error [Unknown]
  - Product preparation error [Unknown]
  - Off label use [Unknown]
